FAERS Safety Report 12550069 (Version 3)
Quarter: 2016Q3

REPORT INFORMATION
  Report Type: Spontaneous
  Country: US (occurrence: US)
  Receive Date: 20160712
  Receipt Date: 20160808
  Transmission Date: 20161109
  Serious: No
  Sender: FDA-Public Use
  Company Number: US-BEH-2016062665

PATIENT
  Sex: Female
  Weight: 54 kg

DRUGS (21)
  1. MEDROL [Concomitant]
     Active Substance: METHYLPREDNISOLONE
  2. ALLEGRA [Concomitant]
     Active Substance: FEXOFENADINE HYDROCHLORIDE
  3. LIDOCAINE/PRILOCAINE [Concomitant]
     Active Substance: LIDOCAINE\PRILOCAINE
  4. VITAMIN B [Concomitant]
     Active Substance: VITAMIN B
  5. EPIPEN [Concomitant]
     Active Substance: EPINEPHRINE
  6. FISH OIL [Concomitant]
     Active Substance: FISH OIL
  7. MULTIVITAMIN [Concomitant]
     Active Substance: VITAMINS
  8. DIPHENHYDRAMINE. [Concomitant]
     Active Substance: DIPHENHYDRAMINE
  9. DILTIAZEM. [Concomitant]
     Active Substance: DILTIAZEM
  10. SEREVENT DISKUS [Concomitant]
     Active Substance: SALMETEROL XINAFOATE
  11. GLUCOSAMINE [Concomitant]
     Active Substance: GLUCOSAMINE
  12. HIZENTRA [Suspect]
     Active Substance: HUMAN IMMUNOGLOBULIN G
     Indication: IMMUNODEFICIENCY COMMON VARIABLE
     Route: 058
     Dates: start: 20130425
  13. LMX [Concomitant]
     Active Substance: LIDOCAINE
  14. VICODIN [Concomitant]
     Active Substance: ACETAMINOPHEN\HYDROCODONE BITARTRATE
  15. XOLAIR [Concomitant]
     Active Substance: OMALIZUMAB
  16. VITAMIN C [Concomitant]
     Active Substance: ASCORBIC ACID
  17. QVAR [Concomitant]
     Active Substance: BECLOMETHASONE DIPROPIONATE
  18. DOXYCYCLINE. [Concomitant]
     Active Substance: DOXYCYCLINE
  19. ADVAIR HFA [Concomitant]
     Active Substance: FLUTICASONE PROPIONATE\SALMETEROL XINAFOATE
  20. VITAMIN A [Concomitant]
     Active Substance: VITAMIN A
  21. PROBIOTIC [Concomitant]
     Active Substance: PROBIOTICS NOS

REACTIONS (1)
  - Upper respiratory tract infection [Unknown]
